FAERS Safety Report 7333961-1 (Version None)
Quarter: 2011Q1

REPORT INFORMATION
  Report Type: 
  Country: None (occurrence: None)
  Receive Date: 20110307
  Receipt Date: 20110222
  Transmission Date: 20110831
  Serious: Yes (Hospitalization)
  Sender: FDA-Public Use
  Company Number: GB-AMGEN-GBRSP2011011325

PATIENT
  Age: 64 Year
  Sex: Male

DRUGS (13)
  1. CO-CODAMOL [Concomitant]
     Dosage: 2 DF, AS NEEDED
  2. ENBREL [Suspect]
     Indication: RHEUMATOID ARTHRITIS
     Dosage: 50 MG, WEEKLY
     Route: 058
     Dates: start: 20050801, end: 20100126
  3. METHOTREXATE [Concomitant]
     Indication: RHEUMATOID ARTHRITIS
     Dosage: 25 MG, WEEKLY
     Route: 048
     Dates: start: 20030611
  4. SALBUTAMOL [Concomitant]
     Dosage: AS NECESSARY
     Route: 055
  5. HYDROXYCHLOROQUINE [Concomitant]
     Indication: RHEUMATOID ARTHRITIS
     Dosage: 400 MG, 1X/DAY
     Route: 048
     Dates: start: 20040316
  6. SIMVASTATIN [Concomitant]
     Dosage: 10 MG, 1X/DAY
  7. SPIRIVA [Concomitant]
     Dosage: 1 DF, 1X/DAY
     Route: 055
  8. ASPIRIN [Concomitant]
     Dosage: 150 MG, 1X/DAY
  9. RAMIPRIL [Concomitant]
     Dosage: 10 MG, 1X/DAY
  10. OMEPRAZOLE [Concomitant]
     Dosage: 20 MG, 1X/DAY
     Route: 048
  11. BISOPROLOL FUMARATE [Concomitant]
     Dosage: 10 MG, 1X/DAY
  12. FOLIC ACID [Concomitant]
     Dosage: 5 MG, 5-6 TIMES WEEKLY
  13. SULPHASALAZINE [Concomitant]
     Indication: RHEUMATOID ARTHRITIS
     Dosage: 4 MG, 1X/DAY
     Route: 048
     Dates: start: 20030226

REACTIONS (1)
  - RENAL CANCER [None]
